FAERS Safety Report 5712556-7 (Version None)
Quarter: 2008Q2

REPORT INFORMATION
  Report Type: 
  Country: None (occurrence: None)
  Receive Date: 20080422
  Receipt Date: 20080410
  Transmission Date: 20081010
  Serious: Yes (Other)
  Sender: FDA-Public Use
  Company Number: BE-ELI_LILLY_AND_COMPANY-BE200801005323

PATIENT
  Sex: Male
  Weight: 80 kg

DRUGS (1)
  1. XIGRIS [Suspect]
     Indication: SEPTIC SHOCK
     Dosage: 24 UG/KG/H
     Route: 042
     Dates: start: 20080121, end: 20080124

REACTIONS (1)
  - THROMBOCYTOPENIA [None]
